FAERS Safety Report 7014734-6 (Version None)
Quarter: 2010Q3

REPORT INFORMATION
  Report Type: 
  Country: None (occurrence: None)
  Receive Date: 20100927
  Receipt Date: 20100920
  Transmission Date: 20110219
  Serious: Yes (Other)
  Sender: FDA-Public Use
  Company Number: PHHY2010CO62704

PATIENT
  Sex: Female

DRUGS (1)
  1. GENTEAL (NVO) [Suspect]
     Indication: DRY EYE
     Dosage: ONE DROP EACH FOUR HOURS
     Route: 061
     Dates: start: 20100813, end: 20100813

REACTIONS (2)
  - CONJUNCTIVAL HYPERAEMIA [None]
  - INTRAOCULAR PRESSURE INCREASED [None]
